FAERS Safety Report 4995260-2 (Version None)
Quarter: 2006Q2

REPORT INFORMATION
  Report Type: 
  Country: None (occurrence: None)
  Receive Date: 20060508
  Receipt Date: 20060403
  Transmission Date: 20061013
  Serious: Yes (Hospitalization)
  Sender: FDA-Public Use
  Company Number: US-MERCK-0604USA00795

PATIENT
  Age: 77 Year
  Sex: Male

DRUGS (1)
  1. VIOXX [Suspect]
     Route: 048
     Dates: start: 20030101, end: 20040101

REACTIONS (4)
  - BENIGN PROSTATIC HYPERPLASIA [None]
  - CEREBROVASCULAR ACCIDENT [None]
  - HYPERTENSION [None]
  - LACUNAR INFARCTION [None]
